FAERS Safety Report 25035792 (Version 1)
Quarter: 2025Q1

REPORT INFORMATION
  Report Type: Spontaneous
  Country: US (occurrence: None)
  Receive Date: 20250304
  Receipt Date: 20250304
  Transmission Date: 20250409
  Serious: No
  Sender: FDA-CTU
  Company Number: None

PATIENT
  Age: 61 Year
  Sex: Female

DRUGS (1)
  1. PEMBROLIZUMAB [Suspect]
     Active Substance: PEMBROLIZUMAB

REACTIONS (4)
  - Adverse drug reaction [None]
  - Myasthenia gravis [None]
  - Eyelid function disorder [None]
  - Therapy interrupted [None]

NARRATIVE: CASE EVENT DATE: 20241226
